FAERS Safety Report 4679787-9 (Version None)
Quarter: 2005Q2

REPORT INFORMATION
  Report Type: 
  Country: None (occurrence: None)
  Receive Date: 20050602
  Receipt Date: 20050223
  Transmission Date: 20051028
  Serious: Yes (Other)
  Sender: FDA-Public Use
  Company Number: PHBS2005BE02965

PATIENT
  Age: 48 Year
  Sex: Male

DRUGS (7)
  1. REDOMEX [Concomitant]
     Route: 065
  2. TRAZOLAN [Concomitant]
     Route: 065
  3. ASAFLOW [Concomitant]
     Route: 065
  4. ZOMETA [Suspect]
     Indication: WALDENSTROM'S MACROGLOBULINAEMIA
     Dosage: UNK, UNK
     Route: 042
     Dates: start: 20030301
  5. HYPERBARIC [Suspect]
  6. BONEFOS [Suspect]
     Route: 065
     Dates: start: 19971101, end: 19980301
  7. AREDIA [Suspect]
     Route: 042
     Dates: start: 19980401, end: 20020101

REACTIONS (13)
  - ABSCESS [None]
  - ASEPTIC NECROSIS BONE [None]
  - BONE LESION EXCISION [None]
  - FISTULA [None]
  - HYPERBARIC OXYGEN THERAPY [None]
  - MALIGNANT NEOPLASM PROGRESSION [None]
  - OSTEITIS [None]
  - OSTEOMYELITIS [None]
  - OSTEONECROSIS [None]
  - PRIMARY SEQUESTRUM [None]
  - SEQUESTRECTOMY [None]
  - TOOTH EXTRACTION [None]
  - WOUND DEBRIDEMENT [None]
